FAERS Safety Report 8469617-1 (Version None)
Quarter: 2012Q2

REPORT INFORMATION
  Report Type: 
  Country: None (occurrence: None)
  Receive Date: 20120626
  Receipt Date: 20120614
  Transmission Date: 20120825
  Serious: Yes (Congenital Anomaly, Other)
  Sender: FDA-Public Use
  Company Number: US-PFIZER INC-2012150867

PATIENT

DRUGS (1)
  1. ZOLOFT [Suspect]
     Indication: DEPRESSION
     Dosage: UNK
     Route: 064

REACTIONS (5)
  - HEART DISEASE CONGENITAL [None]
  - CLEFT PALATE [None]
  - MATERNAL EXPOSURE TIMING UNSPECIFIED [None]
  - DYSMORPHISM [None]
  - ANOTIA [None]
